FAERS Safety Report 19278388 (Version 2)
Quarter: 2021Q4

REPORT INFORMATION
  Report Type: Report from Study
  Country: PE (occurrence: PE)
  Receive Date: 20210520
  Receipt Date: 20211109
  Transmission Date: 20220303
  Serious: Yes (Hospitalization)
  Sender: FDA-Public Use
  Company Number: PE-TEVA-2021-PE-1912332

PATIENT
  Age: 41 Year
  Sex: Male

DRUGS (6)
  1. CLINDAMYCIN [Suspect]
     Active Substance: CLINDAMYCIN
     Indication: Antibiotic therapy
     Dosage: THE DAYS OF ANTIBACTERIAL THERAPY WAS REPORTED AS 54 DAYS
     Route: 065
     Dates: start: 2019
  2. CEFTRIAXONE [Suspect]
     Active Substance: CEFTRIAXONE
     Indication: Antibiotic therapy
     Dosage: THE DAYS OF ANTIBACTERIAL THERAPY WAS REPORTED AS 54 DAYS
     Route: 065
     Dates: start: 2019
  3. CEFAZOLIN [Suspect]
     Active Substance: CEFAZOLIN
     Indication: Antibiotic therapy
     Dosage: THE DAYS OF ANTIBACTERIAL THERAPY WAS REPORTED AS 54 DAYS
     Route: 065
     Dates: start: 2019
  4. VANCOMYCIN [Suspect]
     Active Substance: VANCOMYCIN
     Indication: Antibiotic therapy
     Dosage: THE DAYS OF ANTIBACTERIAL THERAPY WAS REPORTED AS 54 DAYS
     Route: 065
     Dates: start: 2019
  5. MEROPENEM [Suspect]
     Active Substance: MEROPENEM
     Indication: Antibiotic therapy
     Dosage: THE DAYS OF ANTIBACTERIAL THERAPY WAS REPORTED AS 54 DAYS
     Route: 065
     Dates: start: 2019
  6. COLISTIN [Suspect]
     Active Substance: COLISTIN
     Indication: Antibiotic therapy
     Dosage: THE DAYS OF ANTIBACTERIAL THERAPY WAS REPORTED AS 54 DAYS
     Route: 065
     Dates: start: 2019

REACTIONS (2)
  - Clostridium difficile colitis [Unknown]
  - Nosocomial infection [Unknown]

NARRATIVE: CASE EVENT DATE: 20190101
